FAERS Safety Report 6319247 (Version 6)
Quarter: 2013Q4

REPORT INFORMATION
  Report Type: Spontaneous
  Country: US (occurrence: US)
  Receive Date: 20070524
  Receipt Date: 20131007
  Transmission Date: 20140711
  Serious: Yes (Other)
  Sender: FDA-Public Use
  Company Number: PHEH2007US07643

PATIENT
  Sex: Female

DRUGS (8)
  1. ZOMETA [Suspect]
     Indication: PLASMA CELL MYELOMA
  2. AREDIA [Suspect]
  3. BISPHOSPHONATES [Suspect]
  4. LISINOPRIL [Concomitant]
  5. MS CONTIN [Concomitant]
  6. COMPAZINE [Concomitant]
  7. CALCIUM [Concomitant]
  8. MULTIVITAMINS [Concomitant]

REACTIONS (43)
  - Cardiomegaly [Unknown]
  - Spinal compression fracture [Unknown]
  - Pleural effusion [Unknown]
  - Osteonecrosis of jaw [Unknown]
  - Gingival pain [Unknown]
  - Osteomyelitis [Unknown]
  - Localised infection [Unknown]
  - Renal failure acute [Unknown]
  - Bone disorder [Unknown]
  - Swelling [Unknown]
  - Purulence [Unknown]
  - Pyrexia [Unknown]
  - Blood glucose increased [Unknown]
  - Leukopenia [Unknown]
  - Lymphopenia [Unknown]
  - Osteopenia [Unknown]
  - Osteolysis [Unknown]
  - Spinal osteoarthritis [Unknown]
  - Vascular calcification [Unknown]
  - Osteoarthritis [Unknown]
  - Trigger finger [Unknown]
  - Cystitis [Unknown]
  - Renal failure chronic [Unknown]
  - Myelodysplastic syndrome [Unknown]
  - Pneumonia [Unknown]
  - Migraine [Unknown]
  - Lactose intolerance [Unknown]
  - Depression [Unknown]
  - Squamous cell carcinoma [Unknown]
  - Bronchitis [Unknown]
  - Second primary malignancy [Unknown]
  - Cardiac failure congestive [Unknown]
  - Fall [Unknown]
  - Atelectasis [Unknown]
  - Rash erythematous [Unknown]
  - Pulmonary mass [Unknown]
  - Weight decreased [Unknown]
  - Decreased appetite [Unknown]
  - Hypokalaemia [Unknown]
  - Intervertebral disc protrusion [Unknown]
  - Paronychia [Unknown]
  - Colitis [Unknown]
  - Diverticulum [Unknown]
